FAERS Safety Report 12160602 (Version 1)
Quarter: 2016Q1

REPORT INFORMATION
  Report Type: Other
  Country: JP (occurrence: JP)
  Receive Date: 20160308
  Receipt Date: 20160308
  Transmission Date: 20160526
  Serious: Yes (Other)
  Sender: FDA-Public Use
  Company Number: JP-IGI LABORATORIES, INC.-1048810

PATIENT
  Sex: Male

DRUGS (1)
  1. FORTAZ [Suspect]
     Active Substance: CEFTAZIDIME SODIUM
     Indication: PROSTATITIS
     Route: 042

REACTIONS (4)
  - Drug eruption [Unknown]
  - Drug-induced liver injury [Recovering/Resolving]
  - Disseminated intravascular coagulation [Unknown]
  - Rash [Unknown]
